APPROVED DRUG PRODUCT: IPRATROPIUM BROMIDE
Active Ingredient: IPRATROPIUM BROMIDE
Strength: 0.02%
Dosage Form/Route: SOLUTION;INHALATION
Application: A075693 | Product #001 | TE Code: AN
Applicant: THE RITEDOSE CORP
Approved: Jan 26, 2001 | RLD: No | RS: Yes | Type: RX